FAERS Safety Report 10128440 (Version 1)
Quarter: 2014Q2

REPORT INFORMATION
  Report Type: Spontaneous
  Country: US (occurrence: US)
  Receive Date: 20140428
  Receipt Date: 20140428
  Transmission Date: 20141212
  Serious: No
  Sender: FDA-Public Use
  Company Number: US-B.I. PHARMACEUTICALS,INC./RIDGEFIELD-2014-BI-17805BP

PATIENT
  Sex: Female
  Weight: 81.81 kg

DRUGS (12)
  1. SPIRIVA [Suspect]
     Indication: CHRONIC OBSTRUCTIVE PULMONARY DISEASE
     Dosage: 18 MCG
     Route: 055
     Dates: start: 2009
  2. GLIPIZIDE [Concomitant]
     Indication: DIABETES MELLITUS
     Dosage: 15 MG
     Route: 048
  3. CITALOPRAM [Concomitant]
     Indication: DEPRESSION
     Dosage: 20 MG
     Route: 048
  4. LOVASTATIN [Concomitant]
     Indication: BLOOD CHOLESTEROL INCREASED
     Dosage: 80 MG
     Route: 048
  5. LEVOTHYROXINE [Concomitant]
     Indication: HYPOTHYROIDISM
     Dosage: 50 MCG
     Route: 048
  6. BENZONATATE [Concomitant]
     Dosage: 300 MG
     Route: 048
  7. PRIMIDONE [Concomitant]
     Indication: PARKINSON^S DISEASE
     Dosage: 100 MG
     Route: 048
  8. DEPAKOTE [Concomitant]
     Dosage: 1000 MG
     Route: 048
  9. DESMOPRESSIN [Concomitant]
     Dosage: 1 MG
     Route: 048
  10. HYDROCHLOROT [Concomitant]
     Indication: FLUID RETENTION
     Dosage: 150 MG
     Route: 048
  11. GABAPETIN [Concomitant]
     Indication: PARKINSON^S DISEASE
     Dosage: 300 MG
     Route: 048
  12. ONE A DAY FOR WOMEN [Concomitant]
     Route: 048

REACTIONS (2)
  - Condition aggravated [Not Recovered/Not Resolved]
  - Hypersensitivity [Not Recovered/Not Resolved]
